FAERS Safety Report 11051156 (Version 7)
Quarter: 2017Q4

REPORT INFORMATION
  Report Type: Spontaneous
  Country: JP (occurrence: JP)
  Receive Date: 20150421
  Receipt Date: 20171020
  Transmission Date: 20180320
  Serious: Yes (Hospitalization)
  Sender: FDA-Public Use
  Company Number: JP-PFIZER INC-2015130062

PATIENT
  Age: 73 Year
  Sex: Male

DRUGS (3)
  1. XALKORI [Suspect]
     Active Substance: CRIZOTINIB
     Dosage: 250 MG, DAILY
     Route: 048
     Dates: start: 2016, end: 20161215
  2. XALKORI [Suspect]
     Active Substance: CRIZOTINIB
     Indication: LUNG NEOPLASM MALIGNANT
     Dosage: 500 MG, ALTERNATE DAY
     Route: 048
     Dates: start: 20130325, end: 20150403
  3. XALKORI [Suspect]
     Active Substance: CRIZOTINIB
     Dosage: UNK
     Route: 048
     Dates: start: 20170220, end: 20170904

REACTIONS (2)
  - Diarrhoea [Not Recovered/Not Resolved]
  - Pancreatitis [Recovering/Resolving]

NARRATIVE: CASE EVENT DATE: 20150403
